FAERS Safety Report 9799590 (Version 1)
Quarter: 2014Q1

REPORT INFORMATION
  Report Type: Spontaneous
  Country: US (occurrence: US)
  Receive Date: 20140106
  Receipt Date: 20140106
  Transmission Date: 20141002
  Serious: No
  Sender: FDA-Public Use
  Company Number: US-TEVA-454242USA

PATIENT
  Sex: Female
  Weight: 70.37 kg

DRUGS (9)
  1. TREANDA [Suspect]
     Indication: NON-HODGKIN^S LYMPHOMA
     Route: 042
  2. TREANDA [Suspect]
     Route: 042
  3. RITUXAN [Concomitant]
     Indication: NON-HODGKIN^S LYMPHOMA
  4. LISINOPRIL [Concomitant]
     Indication: HYPERTENSION
     Dosage: 20 MILLIGRAM DAILY;
  5. CLONAZEPAM [Concomitant]
     Indication: SLEEP DISORDER
     Dosage: 1 MILLIGRAM DAILY;
  6. ONDANSETRON [Concomitant]
     Indication: NAUSEA
  7. MULTIVITAMIN [Concomitant]
     Indication: PRODUCT USED FOR UNKNOWN INDICATION
  8. CALCIUM [Concomitant]
     Indication: PRODUCT USED FOR UNKNOWN INDICATION
  9. PREDNISONE [Concomitant]
     Indication: EYE SWELLING

REACTIONS (5)
  - Eye swelling [Not Recovered/Not Resolved]
  - Eye pruritus [Not Recovered/Not Resolved]
  - Eye irritation [Not Recovered/Not Resolved]
  - Ocular hyperaemia [Not Recovered/Not Resolved]
  - Skin burning sensation [Not Recovered/Not Resolved]
